FAERS Safety Report 10746535 (Version 2)
Quarter: 2015Q1

REPORT INFORMATION
  Report Type: Report from Study
  Country: HU (occurrence: HU)
  Receive Date: 20150128
  Receipt Date: 20150217
  Transmission Date: 20150721
  Serious: Yes (Hospitalization)
  Sender: FDA-Public Use
  Company Number: HU-BIOGENIDEC-2015BI010484

PATIENT
  Age: 29 Year
  Sex: Female
  Weight: 75 kg

DRUGS (4)
  1. CIPRALEX [Concomitant]
     Active Substance: ESCITALOPRAM OXALATE
     Indication: TENSION HEADACHE
     Route: 048
     Dates: start: 20140404
  2. MYDETON [Concomitant]
     Indication: TENSION HEADACHE
     Route: 048
     Dates: start: 201307
  3. AVONEX [Suspect]
     Active Substance: INTERFERON BETA-1A
     Indication: MULTIPLE SCLEROSIS
     Route: 030
     Dates: start: 20140131
  4. RIVOTRIL [Concomitant]
     Active Substance: CLONAZEPAM
     Indication: TENSION HEADACHE
     Route: 048
     Dates: start: 201307

REACTIONS (5)
  - Multiple sclerosis relapse [Not Recovered/Not Resolved]
  - Optic neuritis [Unknown]
  - Vision blurred [Recovered/Resolved]
  - Gait disturbance [Not Recovered/Not Resolved]
  - Dizziness [Not Recovered/Not Resolved]

NARRATIVE: CASE EVENT DATE: 20150111
